FAERS Safety Report 16584464 (Version 1)
Quarter: 2019Q3

REPORT INFORMATION
  Report Type: Spontaneous
  Country: JP (occurrence: JP)
  Receive Date: 20190717
  Receipt Date: 20190717
  Transmission Date: 20191004
  Serious: Yes (Hospitalization)
  Sender: FDA-Public Use
  Company Number: JP-ORPHAN EUROPE-2070919

PATIENT
  Age: 19 Year
  Sex: Male
  Weight: 49.9 kg

DRUGS (15)
  1. BIOTIN [Concomitant]
     Active Substance: BIOTIN
     Route: 048
  2. L CARTIN [Concomitant]
     Active Substance: LEVOCARNITINE HYDROCHLORIDE
     Route: 048
  3. CALCIUM LACTATE [Concomitant]
     Active Substance: CALCIUM LACTATE
     Route: 048
  4. SODIUM BENZOATE [Concomitant]
     Active Substance: SODIUM BENZOATE
     Route: 048
  5. GLUCOSE [Concomitant]
     Active Substance: DEXTROSE
     Route: 048
  6. ALINAMIN F [Concomitant]
     Active Substance: FURSULTIAMINE HYDROCHLORIDE
     Route: 048
  7. GASTER [Concomitant]
     Active Substance: FAMOTIDINE
     Route: 048
  8. CARBAGLU [Suspect]
     Active Substance: CARGLUMIC ACID
     Route: 050
     Dates: end: 20180226
  9. CARBAGLU [Suspect]
     Active Substance: CARGLUMIC ACID
     Route: 050
     Dates: start: 20180227, end: 20180426
  10. ASCORBIC ACID. [Concomitant]
     Active Substance: ASCORBIC ACID
     Route: 048
  11. MIYA-BM [Concomitant]
     Active Substance: CLOSTRIDIUM BUTYRICUM SPORES STRAIN M-55
     Route: 048
  12. NEUQUINON [Concomitant]
     Active Substance: UBIDECARENONE
     Route: 048
  13. CARBAGLU [Suspect]
     Active Substance: CARGLUMIC ACID
     Indication: HYPERAMMONAEMIA
     Route: 050
     Dates: start: 20170110
  14. ADSORBIN [Concomitant]
     Active Substance: ALUMINUM SILICATE
     Route: 048
  15. LOPEMIN [Concomitant]
     Active Substance: LOPERAMIDE HYDROCHLORIDE
     Route: 048

REACTIONS (8)
  - Upper respiratory tract inflammation [Unknown]
  - Hyperammonaemia [Recovered/Resolved]
  - Vomiting [Recovered/Resolved]
  - Vomiting [Recovered/Resolved]
  - Hyperammonaemia [Recovered/Resolved]
  - Hyperammonaemia [Recovered/Resolved]
  - Vomiting [Recovered/Resolved]
  - Hyperammonaemia [Unknown]

NARRATIVE: CASE EVENT DATE: 20180704
